FAERS Safety Report 17961627 (Version 1)
Quarter: 2020Q2

REPORT INFORMATION
  Report Type: Spontaneous
  Country: US (occurrence: US)
  Receive Date: 20200629
  Receipt Date: 20200629
  Transmission Date: 20200714
  Serious: No
  Sender: FDA-Public Use
  Company Number: US-ROCHE-2452935

PATIENT
  Sex: Female
  Weight: 39.95 kg

DRUGS (7)
  1. XELODA [Suspect]
     Active Substance: CAPECITABINE
     Route: 048
  2. XELODA [Suspect]
     Active Substance: CAPECITABINE
     Indication: OVARIAN CANCER
     Dosage: 100 MG TAKE 2 TABLETS BY MOUTH
     Route: 048
     Dates: start: 20191009
  3. BIOTIN [Concomitant]
     Active Substance: BIOTIN
     Route: 060
     Dates: start: 20190723, end: 20190830
  4. COENZYME Q10 [Concomitant]
     Active Substance: UBIDECARENONE
     Route: 048
     Dates: start: 20190830
  5. INCRUSE ELLIPTA [Concomitant]
     Active Substance: UMECLIDINIUM BROMIDE
     Route: 065
     Dates: start: 20190826
  6. MILK THISTLE [SILYBUM MARIANUM] [Concomitant]
     Active Substance: DIETARY SUPPLEMENT\HERBALS\MILK THISTLE
     Route: 065
     Dates: start: 20180108
  7. CURCUMIN [Concomitant]
     Active Substance: CURCUMIN
     Route: 065
     Dates: start: 20180108, end: 20190830

REACTIONS (1)
  - Skin irritation [Unknown]
